FAERS Safety Report 14841798 (Version 8)
Quarter: 2018Q3

REPORT INFORMATION
  Report Type: Report from Study
  Country: DE (occurrence: DE)
  Receive Date: 20180503
  Receipt Date: 20180907
  Transmission Date: 20181010
  Serious: Yes (Hospitalization, Other)
  Sender: FDA-Public Use
  Company Number: DE-PFIZER INC-2017525652

PATIENT
  Age: 51 Year
  Sex: Female

DRUGS (5)
  1. HYDROXYCHLOROQUINE [Concomitant]
     Active Substance: HYDROXYCHLOROQUINE
     Dosage: 200 MG, UNK
  2. HUMIRA [Suspect]
     Active Substance: ADALIMUMAB
     Indication: RHEUMATOID ARTHRITIS
     Dosage: 40 MG, 1X/WEEK
     Route: 058
     Dates: start: 20160601
  3. SALAZOSULFAPYRIDINE [Concomitant]
     Active Substance: SULFASALAZINE
     Dosage: 500 MG, UNK
  4. HCG [Concomitant]
     Active Substance: GONADOTROPHIN, CHORIONIC
  5. MTX SANDOZ [Suspect]
     Active Substance: METHOTREXATE SODIUM
     Dosage: 10 MG, WEEKLY
     Dates: start: 20160101

REACTIONS (10)
  - Condition aggravated [Not Recovered/Not Resolved]
  - Myopathy [Not Recovered/Not Resolved]
  - Diabetes mellitus [Unknown]
  - Influenza like illness [Unknown]
  - Spinal osteoarthritis [Not Recovered/Not Resolved]
  - Fibromyalgia [Not Recovered/Not Resolved]
  - Medial tibial stress syndrome [Unknown]
  - Folliculitis [Unknown]
  - Back pain [Not Recovered/Not Resolved]
  - Anaemia [Unknown]

NARRATIVE: CASE EVENT DATE: 20170201
